FAERS Safety Report 7316232-9 (Version None)
Quarter: 2011Q1

REPORT INFORMATION
  Report Type: 
  Country: None (occurrence: None)
  Receive Date: 20110225
  Receipt Date: 20110222
  Transmission Date: 20110831
  Serious: Yes (Hospitalization)
  Sender: FDA-Public Use
  Company Number: US-ABBOTT-11P-163-0707118-00

PATIENT
  Sex: Female
  Weight: 58.566 kg

DRUGS (5)
  1. IODINE [Concomitant]
     Indication: PRODUCT USED FOR UNKNOWN INDICATION
  2. HUMIRA [Suspect]
     Indication: RHEUMATOID ARTHRITIS
     Dates: start: 20100301, end: 20110219
  3. ANTI-INFLAMMATORY [Concomitant]
     Indication: PRODUCT USED FOR UNKNOWN INDICATION
  4. FLOVENT [Concomitant]
     Indication: PRODUCT USED FOR UNKNOWN INDICATION
  5. ARANESP [Concomitant]

REACTIONS (4)
  - ULCER HAEMORRHAGE [None]
  - ANAEMIA [None]
  - WEIGHT DECREASED [None]
  - FATIGUE [None]
